FAERS Safety Report 18916400 (Version 2)
Quarter: 2021Q3

REPORT INFORMATION
  Report Type: Spontaneous
  Country: JP (occurrence: JP)
  Receive Date: 20210219
  Receipt Date: 20210922
  Transmission Date: 20211014
  Serious: Yes (Hospitalization, Other)
  Sender: FDA-Public Use
  Company Number: JP-009507513-2009JPN000608J

PATIENT
  Age: 7 Decade
  Sex: Male

DRUGS (5)
  1. KEYTRUDA [Suspect]
     Active Substance: PEMBROLIZUMAB
     Indication: RENAL CELL CARCINOMA STAGE IV
     Dosage: 200 MILLIGRAM, Q3W
     Route: 041
     Dates: start: 202004, end: 202008
  2. INLYTA [Suspect]
     Active Substance: AXITINIB
     Dosage: 7 MILLIGRAM, BID
     Route: 048
     Dates: start: 2020, end: 202008
  3. KEYTRUDA [Suspect]
     Active Substance: PEMBROLIZUMAB
     Dosage: 200 MILLIGRAM, Q3W
     Route: 041
     Dates: start: 2020, end: 2020
  4. INLYTA [Suspect]
     Active Substance: AXITINIB
     Dosage: UNK
     Route: 048
     Dates: start: 2020, end: 20200909
  5. INLYTA [Suspect]
     Active Substance: AXITINIB
     Indication: RENAL CELL CARCINOMA STAGE IV
     Dosage: 10 MILLIGRAM
     Route: 048
     Dates: start: 202004, end: 2020

REACTIONS (4)
  - Interstitial lung disease [Recovering/Resolving]
  - Hepatic function abnormal [Recovered/Resolved]
  - Rash [Recovering/Resolving]
  - Hepatic function abnormal [Recovering/Resolving]

NARRATIVE: CASE EVENT DATE: 2020
